FAERS Safety Report 4390269-4 (Version None)
Quarter: 2004Q2

REPORT INFORMATION
  Report Type: 
  Country: None (occurrence: None)
  Receive Date: 20040630
  Receipt Date: 20040630
  Transmission Date: 20050107
  Serious: No
  Sender: FDA-Public Use
  Company Number: None

PATIENT
  Sex: Female
  Weight: 1.3 kg

DRUGS (2)
  1. HEPARIN [Suspect]
     Indication: INTRAVENOUS CATHETER MANAGEMENT
     Dosage: PRN AS IV FLUSH
     Route: 042
     Dates: start: 20040607, end: 20040609
  2. HEPARIN [Suspect]
     Indication: INTRAVENOUS CATHETER MANAGEMENT
     Dosage: PRN AS IV FLUSH
     Route: 042

REACTIONS (2)
  - HYPOCOAGULABLE STATE [None]
  - MEDICATION ERROR [None]
